FAERS Safety Report 4678202-9 (Version None)
Quarter: 2005Q2

REPORT INFORMATION
  Report Type: 
  Country: None (occurrence: None)
  Receive Date: 20050527
  Receipt Date: 20050519
  Transmission Date: 20051028
  Serious: Yes (Other)
  Sender: FDA-Public Use
  Company Number: 2005057599

PATIENT
  Age: 43 Year
  Sex: Female

DRUGS (1)
  1. BEXTRA [Suspect]
     Indication: BACK PAIN
     Dosage: 40 MG (40 MG, AS NECESSARY), ORAL
     Route: 048
     Dates: start: 20040101, end: 20050401

REACTIONS (2)
  - HYPERSENSITIVITY [None]
  - RASH [None]
